FAERS Safety Report 6529972-6 (Version None)
Quarter: 2010Q1

REPORT INFORMATION
  Report Type: 
  Country: None (occurrence: None)
  Receive Date: 20100107
  Receipt Date: 20091230
  Transmission Date: 20100710
  Serious: Yes (Life-Threatening, Hospitalization, Other)
  Sender: FDA-Public Use
  Company Number: FR-BRISTOL-MYERS SQUIBB COMPANY-14922397

PATIENT
  Age: 85 Year
  Sex: Female

DRUGS (5)
  1. GLUCOPHAGE [Suspect]
     Route: 048
     Dates: end: 20090605
  2. BEFIZAL [Suspect]
  3. ZYLORIC [Suspect]
  4. CARDENSIEL [Concomitant]
  5. EBIXA [Concomitant]

REACTIONS (4)
  - CARDIOGENIC SHOCK [None]
  - CYTOLYTIC HEPATITIS [None]
  - LACTIC ACIDOSIS [None]
  - PULMONARY EMBOLISM [None]
